FAERS Safety Report 19258520 (Version 3)
Quarter: 2022Q2

REPORT INFORMATION
  Report Type: Spontaneous
  Country: US (occurrence: None)
  Receive Date: 20210514
  Receipt Date: 20220429
  Transmission Date: 20220720
  Serious: Yes (Other)
  Sender: FDA-Public Use
  Company Number: 2021A413384

PATIENT
  Sex: Female
  Weight: 115.2 kg

DRUGS (32)
  1. PRILOSEC [Suspect]
     Active Substance: OMEPRAZOLE MAGNESIUM
     Indication: Gastrooesophageal reflux disease
     Route: 048
     Dates: start: 2000, end: 2018
  2. PREVACID [Suspect]
     Active Substance: LANSOPRAZOLE
     Indication: Gastrooesophageal reflux disease
     Route: 065
     Dates: start: 2000, end: 2018
  3. PREVACID 24 HR [Suspect]
     Active Substance: LANSOPRAZOLE
     Indication: Gastrooesophageal reflux disease
     Route: 065
     Dates: start: 2000, end: 2018
  4. PROTONIX [Suspect]
     Active Substance: PANTOPRAZOLE SODIUM
     Indication: Gastrooesophageal reflux disease
     Route: 065
     Dates: start: 2000, end: 2018
  5. TRAMADOL [Concomitant]
     Active Substance: TRAMADOL
  6. HYDROCODONE [Concomitant]
     Active Substance: HYDROCODONE
  7. LORAZEPAM [Concomitant]
     Active Substance: LORAZEPAM
  8. FLUTICASONE [Concomitant]
     Active Substance: FLUTICASONE
  9. LISINOPRIL [Concomitant]
     Active Substance: LISINOPRIL
  10. DIAZEPAM [Concomitant]
     Active Substance: DIAZEPAM
  11. TOPROL XL [Concomitant]
     Active Substance: METOPROLOL SUCCINATE
  12. PREDNISONE [Concomitant]
     Active Substance: PREDNISONE
  13. LEVOFLOXACIN [Concomitant]
     Active Substance: LEVOFLOXACIN
  14. DOXYCYCLINE [Concomitant]
     Active Substance: DOXYCYCLINE
  15. FAMOTIDINE [Concomitant]
     Active Substance: FAMOTIDINE
  16. MONTELUKAST [Concomitant]
     Active Substance: MONTELUKAST SODIUM
  17. VENTOLIN [Concomitant]
     Active Substance: ALBUTEROL SULFATE
  18. CIPROFLOXACIN [Concomitant]
     Active Substance: CIPROFLOXACIN
  19. DICYCLOMINE [Concomitant]
     Active Substance: DICYCLOMINE HYDROCHLORIDE
  20. VOLTAREN [Concomitant]
     Active Substance: DICLOFENAC SODIUM
  21. BACLOFEN [Concomitant]
     Active Substance: BACLOFEN
  22. CYCLOBENZAPRINE [Concomitant]
     Active Substance: CYCLOBENZAPRINE
  23. GABAPENTIN [Concomitant]
     Active Substance: GABAPENTIN
  24. WARFARIN [Concomitant]
     Active Substance: WARFARIN
  25. CLOTRIMAZOLE [Concomitant]
     Active Substance: CLOTRIMAZOLE
  26. FLUCONAZOLE [Concomitant]
     Active Substance: FLUCONAZOLE
  27. SPIRONOLACTONE [Concomitant]
     Active Substance: SPIRONOLACTONE
  28. RIZATRIPTAN [Concomitant]
     Active Substance: RIZATRIPTAN
  29. MECLIZINE [Concomitant]
     Active Substance: MECLIZINE HYDROCHLORIDE
  30. ONDANSETRON [Concomitant]
     Active Substance: ONDANSETRON
  31. ESCITALOPRAM [Concomitant]
     Active Substance: ESCITALOPRAM OXALATE
  32. IPRATROPIUM [Concomitant]
     Active Substance: IPRATROPIUM

REACTIONS (2)
  - Chronic kidney disease [Not Recovered/Not Resolved]
  - Acute kidney injury [Not Recovered/Not Resolved]
